FAERS Safety Report 8796143 (Version 1)
Quarter: 2012Q4

REPORT INFORMATION
  Report Type: 
  Country: US (occurrence: US)
  Receive Date: 20120920
  Receipt Date: 20120920
  Transmission Date: 20130627
  Serious: Yes (Other)
  Sender: FDA-Public Use
  Company Number: US-BAYER-2012-097513

PATIENT
  Age: 39 Year
  Sex: Female
  Weight: 82.54 kg

DRUGS (14)
  1. YAZ [Suspect]
     Indication: POLYCYSTIC OVARIES
  2. METFORMIN [Concomitant]
     Indication: POLYCYSTIC OVARIES
     Dosage: 500 mg, TID
     Route: 048
  3. METFORMIN [Concomitant]
     Indication: POLYCYSTIC OVARIES
  4. LEVOTHROID [Concomitant]
     Indication: THYROID DISORDER
     Dosage: .75 mcg 1 times, UNK
     Route: 048
  5. MULTIVIT [Concomitant]
     Dosage: 1 tab, 1 times
     Route: 048
  6. VITAMIN C [Concomitant]
     Dosage: 4,000 units, 1 times
     Route: 048
  7. CALCIUM WITH VITAMIN D [Concomitant]
     Dosage: 1200 mg, 2 times
     Route: 048
  8. PROPRANOLOL [Concomitant]
     Indication: HYPERTENSION
     Dosage: 80 mg, 1 times
     Route: 048
  9. PERCOCET [Concomitant]
     Indication: PAIN
     Dosage: 5-325 mg, PRN
     Route: 048
  10. ACIPHEX [Concomitant]
     Indication: GASTROOESOPHAGEAL REFLUX DISEASE
     Dosage: 20 mg, 1 times
     Route: 048
  11. AMBIEN [Concomitant]
  12. IBUPROFEN [Concomitant]
     Dosage: 800 mg, UNK
  13. FLEXORIL [Concomitant]
  14. VICODAN [Concomitant]

REACTIONS (1)
  - Deep vein thrombosis [None]
